FAERS Safety Report 10375563 (Version 1)
Quarter: 2014Q3

REPORT INFORMATION
  Report Type: Spontaneous
  Country: GB (occurrence: GB)
  Receive Date: 20140811
  Receipt Date: 20140811
  Transmission Date: 20150326
  Serious: Yes (Other)
  Sender: FDA-Public Use
  Company Number: GB-TEVA-498625ISR

PATIENT
  Age: 72 Year
  Sex: Female
  Weight: 73.2 kg

DRUGS (15)
  1. RAMIPRIL. [Suspect]
     Active Substance: RAMIPRIL
     Dates: start: 20140707
  2. CANDESARTAN [Concomitant]
     Active Substance: CANDESARTAN
     Dates: start: 20140721
  3. DIGOXIN. [Concomitant]
     Active Substance: DIGOXIN
     Dates: start: 20140325, end: 20140707
  4. BISOPROLOL [Concomitant]
     Active Substance: BISOPROLOL
     Dates: start: 20140325, end: 20140707
  5. ISOSORBIDE MONONITRATE. [Concomitant]
     Active Substance: ISOSORBIDE MONONITRATE
     Dates: start: 20140325, end: 20140707
  6. LISINOPRIL. [Concomitant]
     Active Substance: LISINOPRIL
     Dates: start: 20140325, end: 20140707
  7. LANSOPRAZOLE. [Concomitant]
     Active Substance: LANSOPRAZOLE
     Dates: start: 20140325, end: 20140707
  8. ISMO [Concomitant]
     Active Substance: ISOSORBIDE MONONITRATE
     Dates: start: 20140704
  9. WARFARIN SODIUM. [Concomitant]
     Active Substance: WARFARIN SODIUM
     Dates: start: 20140325, end: 20140704
  10. LIGHT LIQUID PARAFFIN [Concomitant]
     Dates: start: 20140325, end: 20140707
  11. AQUEOUS CREAM [Concomitant]
     Dates: start: 20140609, end: 20140707
  12. ASPIRIN. [Concomitant]
     Active Substance: ASPIRIN
     Dates: start: 20140524, end: 20140704
  13. NITROMIN [Concomitant]
     Dates: start: 20140516, end: 20140613
  14. FLUCLOXACILLIN [Concomitant]
     Active Substance: FLUCLOXACILLIN
     Dates: start: 20140627, end: 20140711
  15. SIMVASTATIN. [Concomitant]
     Active Substance: SIMVASTATIN
     Dates: start: 20140326, end: 20140707

REACTIONS (6)
  - Feeling abnormal [Recovered/Resolved]
  - Fatigue [Recovered/Resolved]
  - Abdominal pain [Recovered/Resolved]
  - Discomfort [Recovered/Resolved]
  - Headache [Recovered/Resolved]
  - Tinnitus [Recovered/Resolved]

NARRATIVE: CASE EVENT DATE: 20140721
